FAERS Safety Report 17794203 (Version 2)
Quarter: 2020Q2

REPORT INFORMATION
  Report Type: Report from Study
  Country: FI (occurrence: FI)
  Receive Date: 20200515
  Receipt Date: 20200529
  Transmission Date: 20200714
  Serious: Yes (Other)
  Sender: FDA-Public Use
  Company Number: FI-TAKEDA-2020TUS020146

PATIENT
  Age: 9 Year
  Sex: Male

DRUGS (1)
  1. PONATINIB [Suspect]
     Active Substance: PONATINIB
     Indication: EWING^S SARCOMA RECURRENT
     Dosage: 15 MILLIGRAM, QD
     Route: 065
     Dates: start: 20200407, end: 20200428

REACTIONS (4)
  - Disease progression [Not Recovered/Not Resolved]
  - Ewing^s sarcoma [Not Recovered/Not Resolved]
  - Product administered to patient of inappropriate age [Unknown]
  - Off label use [Unknown]

NARRATIVE: CASE EVENT DATE: 20200407
